FAERS Safety Report 4594801-7 (Version None)
Quarter: 2005Q1

REPORT INFORMATION
  Report Type: 
  Country: None (occurrence: None)
  Receive Date: 20050223
  Receipt Date: 20050210
  Transmission Date: 20050727
  Serious: Yes (Death, Other)
  Sender: FDA-Public Use
  Company Number: 2005RR-00456

PATIENT
  Age: 56 Year
  Sex: Female
  Weight: 58 kg

DRUGS (2)
  1. FLUOXETINE CAPSULES 20MG (FLUOXETINE) CAPSULE, 20MG [Suspect]
     Dosage: 20MG, QD, ORAL
     Route: 048
     Dates: start: 20040507
  2. THYROXINE [Concomitant]

REACTIONS (3)
  - CERVICAL VERTEBRAL FRACTURE [None]
  - FALL [None]
  - SKULL FRACTURE [None]
